FAERS Safety Report 26114675 (Version 1)
Quarter: 2025Q4

REPORT INFORMATION
  Report Type: Spontaneous
  Country: SA (occurrence: SA)
  Receive Date: 20251202
  Receipt Date: 20251202
  Transmission Date: 20260117
  Serious: Yes (Disabling)
  Sender: STRIDES
  Company Number: SA-STRIDES ARCOLAB LIMITED-2025SP014658

PATIENT
  Age: 37 Year
  Sex: Male

DRUGS (8)
  1. FLUOXETINE [Suspect]
     Active Substance: FLUOXETINE HYDROCHLORIDE
     Indication: Generalised anxiety disorder
     Dosage: 20 MILLIGRAM, QD
     Route: 065
     Dates: start: 2023, end: 2023
  2. FLUOXETINE [Suspect]
     Active Substance: FLUOXETINE HYDROCHLORIDE
     Indication: Trichotillomania
  3. ATOMOXETINE [Suspect]
     Active Substance: ATOMOXETINE
     Indication: Attention deficit hyperactivity disorder
     Dosage: 25 MILLIGRAM
     Route: 065
  4. ATOMOXETINE [Suspect]
     Active Substance: ATOMOXETINE
     Indication: Trichotillomania
     Dosage: GRADUALLY INCREASED BY 25 MG WEEKLY OVER THREE WEEKS
     Route: 065
  5. ATOMOXETINE [Suspect]
     Active Substance: ATOMOXETINE
     Dosage: 75 MILLIGRAM, ONCE A WEEK/  CONTINUED ATOMOXETINE 75 MG/DAY
     Route: 065
  6. ATOMOXETINE [Suspect]
     Active Substance: ATOMOXETINE
     Dosage: GRADUAL ATOMOXETINE  TAPER (?25 MG/WEEK)
     Route: 065
  7. CONCERTA [Concomitant]
     Active Substance: METHYLPHENIDATE HYDROCHLORIDE
     Indication: Attention deficit hyperactivity disorder
     Dosage: UNK
     Route: 065
  8. CONCERTA [Concomitant]
     Active Substance: METHYLPHENIDATE HYDROCHLORIDE
     Indication: Trichotillomania
     Dosage: TITRATED TO A DOSAGE OF 54 MG
     Route: 065

REACTIONS (6)
  - Condition aggravated [Recovering/Resolving]
  - Impulsive behaviour [Recovering/Resolving]
  - Irritability [Recovering/Resolving]
  - Paradoxical drug reaction [Unknown]
  - Spontaneous ejaculation [Recovered/Resolved]
  - Drug effective for unapproved indication [Unknown]

NARRATIVE: CASE EVENT DATE: 20230101
